FAERS Safety Report 8165322-X (Version None)
Quarter: 2012Q1

REPORT INFORMATION
  Report Type: 
  Country: None (occurrence: None)
  Receive Date: 20120223
  Receipt Date: 20120223
  Transmission Date: 20120608
  Serious: Yes (Other)
  Sender: FDA-Public Use
  Company Number: None

PATIENT
  Age: 22 Year
  Sex: Female
  Weight: 115 kg

DRUGS (15)
  1. FIORICET [Concomitant]
  2. CALCIUM [Concomitant]
  3. DEPAKOTE [Concomitant]
  4. PREDNISONE TAB [Concomitant]
  5. NORTREL 7/7/7 [Concomitant]
  6. IMITREX [Concomitant]
  7. OMEPRAZOLE [Concomitant]
  8. DDAVP [Concomitant]
  9. PRAVASTATIN [Concomitant]
  10. BYETTA [Suspect]
     Indication: OBESITY
     Dosage: 10 MCG BID
     Dates: start: 20100924, end: 20110223
  11. VITAMIN D [Concomitant]
  12. SYNTHROID [Concomitant]
  13. NORDITROPIN [Concomitant]
  14. SOLU-CORTEF [Concomitant]
  15. BYETTA [Suspect]
     Dosage: 5 MCG BID
     Dates: start: 20100827, end: 20100923

REACTIONS (1)
  - CHOLELITHIASIS [None]
